FAERS Safety Report 8959059 (Version 3)
Quarter: 2013Q1

REPORT INFORMATION
  Report Type: Spontaneous
  Country: US (occurrence: US)
  Receive Date: 20121212
  Receipt Date: 20130313
  Transmission Date: 20140127
  Serious: Yes (Hospitalization)
  Sender: FDA-Public Use
  Company Number: US-BAYER-2012-127268

PATIENT
  Age: 53 Year
  Sex: Female
  Weight: 120.64 kg

DRUGS (4)
  1. YASMIN [Suspect]
     Dosage: UNK
     Dates: start: 20040201, end: 200408
  2. PROCARDIA [Concomitant]
     Dosage: UNK
     Route: 048
     Dates: start: 20000702
  3. VASOTERIC [Concomitant]
     Dosage: UNK
     Route: 048
     Dates: start: 20000702
  4. ATENOLOL [Concomitant]
     Dosage: UNK
     Route: 048
     Dates: start: 20000702

REACTIONS (10)
  - Myocardial infarction [None]
  - Cerebrovascular accident [None]
  - Cerebrovascular accident [None]
  - Pain [None]
  - Injury [None]
  - General physical health deterioration [None]
  - Anxiety [None]
  - Anhedonia [None]
  - Emotional distress [None]
  - Pain [None]
